FAERS Safety Report 19959638 (Version 1)
Quarter: 2021Q4

REPORT INFORMATION
  Report Type: Spontaneous
  Country: US (occurrence: US)
  Receive Date: 20211013
  Receipt Date: 20211013
  Transmission Date: 20220303
  Serious: Yes (Hospitalization)
  Sender: FDA-Public Use
  Company Number: None

PATIENT
  Age: 61 Year
  Sex: Female

DRUGS (1)
  1. AFINITOR [Suspect]
     Active Substance: EVEROLIMUS
     Route: 048

REACTIONS (4)
  - COVID-19 [None]
  - Blood potassium decreased [None]
  - Blood magnesium decreased [None]
  - Oxygen saturation decreased [None]

NARRATIVE: CASE EVENT DATE: 20211012
